FAERS Safety Report 21165594 (Version 5)
Quarter: 2022Q4

REPORT INFORMATION
  Report Type: Report from Study
  Country: UZ (occurrence: UZ)
  Receive Date: 20220803
  Receipt Date: 20221025
  Transmission Date: 20230113
  Serious: Yes (Hospitalization)
  Sender: FDA-Public Use
  Company Number: UZ-MYLANLABS-2022M1083042

PATIENT
  Age: 37 Year
  Sex: Male
  Weight: 69 kg

DRUGS (20)
  1. PRETOMANID [Suspect]
     Active Substance: PRETOMANID
     Indication: Pulmonary tuberculosis
     Dosage: 200 MILLIGRAM, QD
     Route: 048
     Dates: start: 20220623, end: 20220723
  2. PRETOMANID [Suspect]
     Active Substance: PRETOMANID
     Dosage: 200 MILLIGRAM, QD
     Route: 048
     Dates: start: 20220624, end: 20220723
  3. PRETOMANID [Suspect]
     Active Substance: PRETOMANID
     Dosage: 200 UNK
     Route: 048
     Dates: start: 20220624, end: 20220920
  4. PRETOMANID [Suspect]
     Active Substance: PRETOMANID
     Dosage: UNK
     Route: 048
     Dates: start: 20220926
  5. LINEZOLID [Suspect]
     Active Substance: LINEZOLID
     Indication: Pulmonary tuberculosis
     Dosage: 600 MILLIGRAM, QD
     Route: 048
     Dates: start: 20220623, end: 20220723
  6. LINEZOLID [Suspect]
     Active Substance: LINEZOLID
     Dosage: 600 MILLIGRAM, QD
     Route: 048
     Dates: start: 20220624, end: 20220723
  7. LINEZOLID [Suspect]
     Active Substance: LINEZOLID
     Dosage: 600 UNK
     Route: 048
     Dates: start: 20220624, end: 20220920
  8. LINEZOLID [Suspect]
     Active Substance: LINEZOLID
     Dosage: UNK
     Route: 048
     Dates: start: 20220926
  9. MOXIFLOXACIN [Suspect]
     Active Substance: MOXIFLOXACIN
     Indication: Pulmonary tuberculosis
     Dosage: 400 MILLIGRAM, QD
     Route: 048
     Dates: start: 20220623, end: 20220723
  10. MOXIFLOXACIN [Suspect]
     Active Substance: MOXIFLOXACIN
     Dosage: 400 MILLIGRAM, QD
     Route: 048
     Dates: start: 20220624, end: 20220723
  11. BEDAQUILINE [Suspect]
     Active Substance: BEDAQUILINE
     Indication: Pulmonary tuberculosis
     Dosage: 400 MILLIGRAM, QD
     Route: 048
     Dates: start: 20220623, end: 20220707
  12. BEDAQUILINE [Suspect]
     Active Substance: BEDAQUILINE
     Dosage: 200 MILLIGRAM, QD (3/7)
     Route: 048
     Dates: start: 20220707, end: 20220723
  13. BEDAQUILINE [Suspect]
     Active Substance: BEDAQUILINE
     Dosage: 400 MILLIGRAM, QD
     Route: 048
     Dates: start: 20220624, end: 20220708
  14. BEDAQUILINE [Suspect]
     Active Substance: BEDAQUILINE
     Dosage: 200 (3/7)
     Route: 048
     Dates: start: 20220708, end: 20220920
  15. BEDAQUILINE [Suspect]
     Active Substance: BEDAQUILINE
     Dosage: UNK
     Route: 048
     Dates: start: 20220926
  16. PYRIDOXINE [Suspect]
     Active Substance: PYRIDOXINE
     Indication: Pulmonary tuberculosis
     Dosage: 50 MILLIGRAM, QD
     Route: 048
     Dates: start: 20220723, end: 20220723
  17. PYRIDOXINE [Suspect]
     Active Substance: PYRIDOXINE
     Dosage: 50 MILLIGRAM, QD
     Route: 048
     Dates: start: 20220624, end: 20220723
  18. CLOFAZIMINE [Suspect]
     Active Substance: CLOFAZIMINE
     Indication: Pulmonary tuberculosis
     Dosage: 100 MILLIGRAM, QD
     Route: 048
     Dates: start: 20220804
  19. CLOFAZIMINE [Suspect]
     Active Substance: CLOFAZIMINE
     Dosage: 100 UNK
     Route: 048
     Dates: start: 20220801, end: 20220920
  20. CLOFAZIMINE [Suspect]
     Active Substance: CLOFAZIMINE
     Dosage: UNK
     Route: 048
     Dates: start: 20220926

REACTIONS (8)
  - Pruritus [Recovered/Resolved]
  - Rash [Recovered/Resolved]
  - Drug hypersensitivity [Unknown]
  - Dermatitis allergic [Unknown]
  - Alanine aminotransferase increased [Recovering/Resolving]
  - Bilirubin conjugated increased [Recovered/Resolved]
  - Hepatomegaly [Unknown]
  - Aspartate aminotransferase decreased [Recovering/Resolving]

NARRATIVE: CASE EVENT DATE: 20220722
